FAERS Safety Report 15159807 (Version 2)
Quarter: 2018Q3

REPORT INFORMATION
  Report Type: Spontaneous
  Country: AU (occurrence: AU)
  Receive Date: 20180718
  Receipt Date: 20180810
  Transmission Date: 20181010
  Serious: Yes (Hospitalization, Other)
  Sender: FDA-Public Use
  Company Number: AU-GLAXOSMITHKLINE-AU2018GSK125638

PATIENT
  Age: 60 Year
  Sex: Male
  Weight: 121 kg

DRUGS (1)
  1. TRELEGY ELLIPTA [Suspect]
     Active Substance: FLUTICASONE FUROATE\UMECLIDINIUM BROMIDE\VILANTEROL TRIFENATATE
     Indication: PRODUCT USED FOR UNKNOWN INDICATION
     Dosage: 1 PUFF(S), QD
     Route: 055
     Dates: start: 20180606, end: 20180727

REACTIONS (8)
  - Pneumonia [Unknown]
  - Condition aggravated [Unknown]
  - Pyrexia [Unknown]
  - Lung consolidation [Unknown]
  - Cough [Unknown]
  - Presyncope [Recovered/Resolved]
  - Chronic obstructive pulmonary disease [Recovered/Resolved with Sequelae]
  - Dyspnoea [Unknown]

NARRATIVE: CASE EVENT DATE: 20180703
